FAERS Safety Report 5206183-8 (Version None)
Quarter: 2006Q4

REPORT INFORMATION
  Report Type: 
  Country: None (occurrence: None)
  Receive Date: 20061026
  Receipt Date: 20060926
  Transmission Date: 20070319
  Serious: No
  Sender: FDA-Public Use
  Company Number: 2006117759

PATIENT
  Age: 80 Year
  Sex: Male
  Weight: 93.8946 kg

DRUGS (2)
  1. LYRICA [Suspect]
     Indication: DIABETIC NEUROPATHY
     Dosage: 200 MG (100 MG, 2 IN 1 D)
     Dates: start: 20050101
  2. AVAPRO [Concomitant]

REACTIONS (4)
  - BURNING SENSATION [None]
  - DRUG EFFECT DECREASED [None]
  - DRUG INEFFECTIVE [None]
  - PARAESTHESIA [None]
